FAERS Safety Report 21677961 (Version 2)
Quarter: 2022Q4

REPORT INFORMATION
  Report Type: Report from Study
  Country: US (occurrence: US)
  Receive Date: 20221203
  Receipt Date: 20221222
  Transmission Date: 20230113
  Serious: Yes (Other)
  Sender: FDA-Public Use
  Company Number: US-002147023-NVSC2022US279294

PATIENT
  Sex: Female

DRUGS (1)
  1. ENTRESTO [Suspect]
     Active Substance: SACUBITRIL\VALSARTAN
     Indication: Product used for unknown indication
     Dosage: 1 DOSAGE FORM, BID (24/26 MG)
     Route: 048

REACTIONS (8)
  - Vulval cancer [Unknown]
  - Papilloma viral infection [Unknown]
  - Rhinorrhoea [Unknown]
  - Dyspnoea [Unknown]
  - Psychomotor hyperactivity [Recovering/Resolving]
  - Weight decreased [Unknown]
  - Sluggishness [Unknown]
  - Cough [Unknown]
